FAERS Safety Report 6422642-4 (Version None)
Quarter: 2009Q4

REPORT INFORMATION
  Report Type: 
  Country: None (occurrence: None)
  Receive Date: 20091102
  Receipt Date: 20091020
  Transmission Date: 20100525
  Serious: Yes (Hospitalization)
  Sender: FDA-Public Use
  Company Number: DE-ELI_LILLY_AND_COMPANY-DE200910000332

PATIENT
  Sex: Female
  Weight: 90 kg

DRUGS (4)
  1. GEMCITABINE HCL [Suspect]
     Indication: BREAST CANCER
     Dosage: 2000 MG, UNK
     Route: 042
     Dates: start: 20090921
  2. DOCETAXEL [Suspect]
     Indication: BREAST CANCER
     Dosage: 150 MG, UNK
     Route: 042
     Dates: start: 20090921
  3. DEXAMETHASONE TAB [Concomitant]
     Indication: ADJUVANT THERAPY
     Dosage: 8 MG, UNK
     Route: 048
     Dates: start: 20090921
  4. GRANISETRON HCL [Concomitant]
     Indication: ADJUVANT THERAPY
     Dosage: 2 MG, UNK
     Route: 048
     Dates: start: 20090921, end: 20090922

REACTIONS (1)
  - ORTHOSTATIC INTOLERANCE [None]
